FAERS Safety Report 7802230-5 (Version None)
Quarter: 2011Q4

REPORT INFORMATION
  Report Type: 
  Country: None (occurrence: None)
  Receive Date: 20111007
  Receipt Date: 20110922
  Transmission Date: 20120403
  Serious: Yes (Other)
  Sender: FDA-Public Use
  Company Number: US-JNJFOC-20110909659

PATIENT
  Age: 40 Year
  Sex: Female
  Weight: 80.74 kg

DRUGS (2)
  1. ROGAINE (FOR WOMEN) [Suspect]
     Route: 061
  2. ROGAINE (FOR WOMEN) [Suspect]
     Indication: ALOPECIA
     Route: 061
     Dates: start: 20110901, end: 20110916

REACTIONS (12)
  - PURULENCE [None]
  - EYE SWELLING [None]
  - APPLICATION SITE REACTION [None]
  - OFF LABEL USE [None]
  - ERYTHEMA [None]
  - PRURITUS [None]
  - URTICARIA [None]
  - DRUG HYPERSENSITIVITY [None]
  - INFECTION [None]
  - HYPERHIDROSIS [None]
  - BURNING SENSATION [None]
  - SWELLING FACE [None]
